FAERS Safety Report 8958674 (Version 1)
Quarter: 2012Q4

REPORT INFORMATION
  Report Type: Spontaneous
  Country: US (occurrence: None)
  Receive Date: 20121206
  Receipt Date: 20121206
  Transmission Date: 20130627
  Serious: Yes (Disabling, Congenital Anomaly)
  Sender: FDA-Public Use
  Company Number: None

PATIENT
  Sex: Female

DRUGS (1)
  1. ZOFRAN [Suspect]
     Indication: MORNING SICKNESS
     Route: 060
     Dates: start: 20040501, end: 20050201

REACTIONS (2)
  - Neurosensory hypoacusis [None]
  - Maternal drugs affecting foetus [None]
